FAERS Safety Report 8277386-3 (Version None)
Quarter: 2012Q2

REPORT INFORMATION
  Report Type: 
  Country: None (occurrence: None)
  Receive Date: 20120412
  Receipt Date: 20120410
  Transmission Date: 20120825
  Serious: No
  Sender: FDA-Public Use
  Company Number: US-PFIZER INC-2012090020

PATIENT
  Sex: Male
  Weight: 13 kg

DRUGS (3)
  1. TENEX [Concomitant]
     Indication: ATTENTION DEFICIT/HYPERACTIVITY DISORDER
     Dosage: UNK
  2. GENOTROPIN [Suspect]
     Indication: GROWTH RETARDATION
     Dosage: 0.6 MG, 1X/DAY
     Route: 058
     Dates: start: 20120301
  3. MELATONIN [Concomitant]
     Dosage: UNK

REACTIONS (4)
  - MIDDLE INSOMNIA [None]
  - CRYING [None]
  - FATIGUE [None]
  - HEADACHE [None]
